FAERS Safety Report 22009854 (Version 3)
Quarter: 2023Q2

REPORT INFORMATION
  Report Type: Spontaneous
  Country: US (occurrence: US)
  Receive Date: 20230220
  Receipt Date: 20230522
  Transmission Date: 20230722
  Serious: Yes (Other)
  Sender: FDA-Public Use
  Company Number: US-BRISTOL-MYERS SQUIBB COMPANY-2023-024401

PATIENT
  Age: 75 Year
  Sex: Male
  Weight: 110.22 kg

DRUGS (1)
  1. REVLIMID [Suspect]
     Active Substance: LENALIDOMIDE
     Indication: Plasma cell myeloma
     Dosage: FREQ: 14D ON 7D OFF
     Route: 048
     Dates: start: 20220401

REACTIONS (7)
  - Abnormal faeces [Not Recovered/Not Resolved]
  - Off label use [Unknown]
  - Deafness [Recovered/Resolved]
  - Palpitations [Unknown]
  - Heart rate decreased [Unknown]
  - Condition aggravated [Recovered/Resolved]
  - Platelet count decreased [Unknown]
